FAERS Safety Report 7824593-7 (Version None)
Quarter: 2011Q4

REPORT INFORMATION
  Report Type: 
  Country: None (occurrence: None)
  Receive Date: 20111019
  Receipt Date: 20111007
  Transmission Date: 20120403
  Serious: Yes (Hospitalization)
  Sender: FDA-Public Use
  Company Number: US-ELI_LILLY_AND_COMPANY-US201110002667

PATIENT
  Sex: Female

DRUGS (2)
  1. CYMBALTA [Suspect]
     Indication: BACK PAIN
     Dosage: 60 MG, UNKNOWN
  2. NEURONTIN [Concomitant]
     Dosage: UNK, UNKNOWN

REACTIONS (3)
  - RENAL FAILURE [None]
  - LOCALISED INFECTION [None]
  - DEHYDRATION [None]
